FAERS Safety Report 5460664-0 (Version None)
Quarter: 2007Q3

REPORT INFORMATION
  Report Type: 
  Country: None (occurrence: None)
  Receive Date: 20070919
  Receipt Date: 20070919
  Transmission Date: 20080115
  Serious: Yes (Other)
  Sender: FDA-Public Use
  Company Number: A0682557A

PATIENT
  Age: 21 Year
  Sex: Female

DRUGS (2)
  1. ALLI [Suspect]
     Indication: WEIGHT CONTROL
     Dosage: 3CAP PER DAY
     Route: 048
     Dates: start: 20070907, end: 20070916
  2. PRIMACARE [Concomitant]
     Route: 048

REACTIONS (1)
  - FAECAL INCONTINENCE [None]
